FAERS Safety Report 11788723 (Version 1)
Quarter: 2015Q4

REPORT INFORMATION
  Report Type: Spontaneous
  Country: US (occurrence: None)
  Receive Date: 20151130
  Receipt Date: 20151130
  Transmission Date: 20160305
  Serious: Yes (Hospitalization, Disabling, Other)
  Sender: FDA-Public Use
  Company Number: None

PATIENT
  Age: 43 Year
  Sex: Male
  Weight: 79.38 kg

DRUGS (5)
  1. CIPROFLOXACIN HCL 500 MG WEST-WARD, INC [Suspect]
     Active Substance: CIPROFLOXACIN HYDROCHLORIDE
     Indication: PROSTATITIS
     Route: 048
     Dates: start: 20151020, end: 20151030
  2. METOPROLOL [Concomitant]
     Active Substance: METOPROLOL
  3. PREVACID [Concomitant]
     Active Substance: LANSOPRAZOLE
  4. AMBIAN [Concomitant]
  5. MULTI VITAMIN [Concomitant]
     Active Substance: VITAMINS

REACTIONS (15)
  - Muscle spasms [None]
  - Thinking abnormal [None]
  - Hypoaesthesia [None]
  - Cognitive disorder [None]
  - Impaired work ability [None]
  - Weight decreased [None]
  - Vision blurred [None]
  - Musculoskeletal chest pain [None]
  - Depression [None]
  - Myalgia [None]
  - Tendonitis [None]
  - Pain in extremity [None]
  - Headache [None]
  - Gait disturbance [None]
  - Insomnia [None]

NARRATIVE: CASE EVENT DATE: 20151031
